FAERS Safety Report 8962392 (Version 1)
Quarter: 2012Q4

REPORT INFORMATION
  Report Type: Spontaneous
  Country: GB (occurrence: None)
  Receive Date: 20121206
  Receipt Date: 20121206
  Transmission Date: 20130627
  Serious: Yes (Other)
  Sender: FDA-Public Use
  Company Number: GER/UKI/12/0026881

PATIENT

DRUGS (3)
  1. RISPERIDONE (RISPERIDONE) [Suspect]
     Indication: MANIC PSYCHOSIS
     Dosage: 3 mg, 1 in 1 D, Oral
     Route: 048
     Dates: start: 201105, end: 201110
  2. RISPERDAAL CONSTA (RISPERIDONE) [Suspect]
     Dosage: 25 ng, 1 in 2 wk, Intramuscular
     Route: 030
     Dates: start: 201011, end: 201103
  3. LITHIUM CARBONATE (LITHIUM CARBONATE) [Concomitant]

REACTIONS (3)
  - Breast engorgement [None]
  - Blood prolactin increased [None]
  - Galactorrhoea [None]
